FAERS Safety Report 22212318 (Version 1)
Quarter: 2023Q2

REPORT INFORMATION
  Report Type: Spontaneous
  Country: US (occurrence: US)
  Receive Date: 20230414
  Receipt Date: 20230414
  Transmission Date: 20230722
  Serious: No
  Sender: FDA-Public Use
  Company Number: US-PFIZER INC-202300154081

PATIENT
  Age: 38 Year
  Sex: Female
  Weight: 77.11 kg

DRUGS (2)
  1. NURTEC ODT [Suspect]
     Active Substance: RIMEGEPANT SULFATE
     Indication: Migraine
     Dosage: UNK
     Dates: start: 202211
  2. IBUPROFEN [Suspect]
     Active Substance: IBUPROFEN
     Dosage: 600 MG, 4X/DAY (ONE TABLET BY MOUTH EVERY 6 HOURS)
     Route: 048

REACTIONS (3)
  - Drug screen false positive [Unknown]
  - Drug screen positive [Unknown]
  - Barbiturates positive [Unknown]

NARRATIVE: CASE EVENT DATE: 20230405
